FAERS Safety Report 7977727-8 (Version None)
Quarter: 2011Q4

REPORT INFORMATION
  Report Type: 
  Country: None (occurrence: None)
  Receive Date: 20111214
  Receipt Date: 20111128
  Transmission Date: 20120403
  Serious: No
  Sender: FDA-Public Use
  Company Number: US-AMGEN-USASP2011062827

PATIENT
  Sex: Female

DRUGS (1)
  1. ENBREL [Suspect]
     Indication: PSORIASIS
     Dosage: UNK MG, 2 TIMES/WK
     Dates: start: 20110301

REACTIONS (7)
  - FATIGUE [None]
  - DYSPNOEA [None]
  - MYALGIA [None]
  - HEADACHE [None]
  - RASH [None]
  - SENSATION OF HEAVINESS [None]
  - MUSCULOSKELETAL STIFFNESS [None]
